FAERS Safety Report 5315287-0 (Version None)
Quarter: 2007Q2

REPORT INFORMATION
  Report Type: 
  Country: None (occurrence: None)
  Receive Date: 20070427
  Receipt Date: 20070418
  Transmission Date: 20071010
  Serious: Yes (Hospitalization)
  Sender: FDA-Public Use
  Company Number: 163-21880-07011087

PATIENT
  Age: 72 Year
  Sex: Male

DRUGS (3)
  1. REVLIMID [Suspect]
     Indication: PLASMACYTOMA
     Dosage: SEE IMAGE
     Route: 048
     Dates: start: 20061221, end: 20070326
  2. REVLIMID [Suspect]
     Indication: PLASMACYTOMA
     Dosage: SEE IMAGE
     Route: 048
     Dates: start: 20070419
  3. REVLIMID [Suspect]

REACTIONS (3)
  - BLOOD COUNT ABNORMAL [None]
  - BRONCHITIS [None]
  - CARDIAC DISORDER [None]
